FAERS Safety Report 7271513-2 (Version None)
Quarter: 2011Q1

REPORT INFORMATION
  Report Type: 
  Country: None (occurrence: None)
  Receive Date: 20110203
  Receipt Date: 20101014
  Transmission Date: 20110831
  Serious: Yes (Hospitalization, Other)
  Sender: FDA-Public Use
  Company Number: US-BAYER-200941569NA

PATIENT
  Sex: Female
  Weight: 61.224 kg

DRUGS (3)
  1. YASMIN [Suspect]
     Indication: MENOMETRORRHAGIA
  2. YASMIN [Suspect]
     Indication: ACNE
     Dosage: UNK
     Dates: start: 20070401, end: 20071119
  3. YASMIN [Suspect]
     Indication: CONTRACEPTION

REACTIONS (10)
  - NECK PAIN [None]
  - HEADACHE [None]
  - SUPERIOR SAGITTAL SINUS THROMBOSIS [None]
  - PYREXIA [None]
  - MUSCULAR WEAKNESS [None]
  - VOMITING [None]
  - PHOTOPHOBIA [None]
  - DEHYDRATION [None]
  - NAUSEA [None]
  - PHARYNGITIS [None]
